FAERS Safety Report 6741402-8 (Version None)
Quarter: 2010Q2

REPORT INFORMATION
  Report Type: 
  Country: None (occurrence: None)
  Receive Date: 20100526
  Receipt Date: 20100517
  Transmission Date: 20101027
  Serious: Yes (Hospitalization, Other)
  Sender: FDA-Public Use
  Company Number: US-BAYER-201015549BCC

PATIENT
  Age: 70 Year
  Sex: Male

DRUGS (27)
  1. ACETYLSALICYLIC ACID [Suspect]
     Indication: DRUG USE FOR UNKNOWN INDICATION
     Route: 065
  2. CLOPIDOGREL [Suspect]
     Indication: STENT PLACEMENT
     Route: 048
     Dates: start: 20090101
  3. CLOPIDOGREL [Suspect]
     Dosage: UNIT DOSE: 150 MG
     Route: 048
  4. CLOPIDOGREL [Suspect]
     Route: 048
  5. WARFARIN SODIUM [Suspect]
     Indication: DRUG USE FOR UNKNOWN INDICATION
     Route: 065
  6. PROTONIX [Concomitant]
     Route: 065
  7. BENADRYL [Concomitant]
     Route: 065
  8. MULTI-VITAMIN [Concomitant]
     Route: 065
  9. FOLIC ACID [Concomitant]
     Route: 065
  10. VITAMIN B COMPLEX TAB [Concomitant]
     Route: 065
  11. SPIRONOLACTONE [Concomitant]
     Route: 065
  12. BUMEX [Concomitant]
     Route: 065
  13. COREG [Concomitant]
     Route: 065
  14. SINGULAIR [Concomitant]
     Route: 065
  15. PERCOCET [Concomitant]
     Indication: PROCEDURAL PAIN
     Route: 065
  16. LEVAQUIN [Concomitant]
     Indication: OSTEOMYELITIS
     Route: 065
  17. COMBIVENT [Concomitant]
     Route: 065
  18. ADVAIR DISKUS 100/50 [Concomitant]
     Route: 065
  19. LIPITOR [Concomitant]
     Route: 065
  20. NAPROXEN [Concomitant]
     Route: 065
  21. ALLEGRA D 24 HOUR [Concomitant]
     Route: 065
  22. AFRIN [Concomitant]
     Route: 065
  23. LOSARTAN POTASSIUM [Concomitant]
     Route: 065
  24. NITROGLYCERIN [Concomitant]
     Route: 065
  25. XANAX [Concomitant]
     Route: 065
  26. ZOCOR [Concomitant]
     Route: 065
  27. WHOLE BLOOD [Concomitant]
     Dosage: CONSUMER RECEIVED TWO UNITS OF BLOOD
     Route: 065
     Dates: start: 20100309

REACTIONS (13)
  - ARTERIAL THROMBOSIS LIMB [None]
  - CHEST PAIN [None]
  - DYSPNOEA [None]
  - DYSPNOEA EXERTIONAL [None]
  - FATIGUE [None]
  - HYPERHIDROSIS [None]
  - HYPOTENSION [None]
  - PERIPHERAL ISCHAEMIA [None]
  - PNEUMONIA STREPTOCOCCAL [None]
  - THROMBOSIS IN DEVICE [None]
  - ULCER [None]
  - VASCULAR GRAFT OCCLUSION [None]
  - VASCULAR GRAFT THROMBOSIS [None]
